FAERS Safety Report 17469449 (Version 1)
Quarter: 2020Q1

REPORT INFORMATION
  Report Type: Spontaneous
  Country: SE (occurrence: SE)
  Receive Date: 20200227
  Receipt Date: 20200227
  Transmission Date: 20200409
  Serious: Yes (Hospitalization)
  Sender: FDA-Public Use
  Company Number: SE-IGSA-SR10009929

PATIENT
  Age: 37 Year
  Sex: Female
  Weight: 98 kg

DRUGS (28)
  1. OXASCAND [Concomitant]
     Active Substance: OXAZEPAM
     Dosage: UNK
     Dates: start: 20151228
  2. FORLAX [Concomitant]
     Active Substance: POLYETHYLENE GLYCOL 4000
     Dosage: UNK
     Dates: start: 20200210
  3. ZOPICLON GENERICS [Concomitant]
     Dosage: UNK
     Dates: start: 20200214
  4. CYMBALTA [Concomitant]
     Active Substance: DULOXETINE HYDROCHLORIDE
     Dosage: UNK
     Dates: start: 20180121
  5. CONCERTA [Concomitant]
     Active Substance: METHYLPHENIDATE HYDROCHLORIDE
     Dosage: UNK
     Dates: start: 20130117
  6. RITALIN [Concomitant]
     Active Substance: METHYLPHENIDATE HYDROCHLORIDE
     Dosage: UNK
     Dates: start: 20140225
  7. OXYCODONE DEPOT ORION [Concomitant]
     Dosage: UNK
     Dates: start: 20200210
  8. GAMUNEX [Suspect]
     Active Substance: HUMAN IMMUNOGLOBULIN G
     Dosage: 40 G, Q.3WK.
     Dates: start: 20200120, end: 20200120
  9. ALVEDON [Concomitant]
     Active Substance: ACETAMINOPHEN
     Dosage: UNK
     Dates: start: 20170109
  10. OFTAGEL [Concomitant]
     Active Substance: CARBOMER
     Dosage: UNK
     Dates: start: 20180529
  11. VALACICLOVIR ACTAVIS [Concomitant]
     Active Substance: VALACYCLOVIR HYDROCHLORIDE
     Dosage: UNK
     Dates: start: 20200216
  12. GAMUNEX [Suspect]
     Active Substance: HUMAN IMMUNOGLOBULIN G
     Dosage: 40 UNK, Q.3WK.
     Dates: start: 20191118, end: 20191118
  13. FICORTRIL                          /00028601/ [Concomitant]
     Dosage: UNK
     Dates: start: 20180529
  14. DIAMOX                             /00016901/ [Concomitant]
     Active Substance: ACETAZOLAMIDE
     Dosage: UNK
     Dates: start: 20200206
  15. DEPO-PROVERA [Concomitant]
     Active Substance: MEDROXYPROGESTERONE ACETATE
     Dosage: UNK
     Dates: start: 20180611
  16. OXYNORM [Concomitant]
     Active Substance: OXYCODONE HYDROCHLORIDE
     Dosage: UNK
     Dates: start: 20180529
  17. ACETYLCYSTEIN MEDA [Concomitant]
     Dosage: UNK
     Dates: start: 20181126
  18. AERIUS                             /01009701/ [Concomitant]
     Active Substance: EBASTINE
     Dosage: UNK
     Dates: start: 20160428
  19. GAMUNEX [Suspect]
     Active Substance: HUMAN IMMUNOGLOBULIN G
     Indication: IMMUNODEFICIENCY COMMON VARIABLE
     Dosage: 40 G, Q.3WK.
     Route: 058
     Dates: start: 20191209, end: 20200102
  20. NEZERIL [Concomitant]
     Dosage: UNK
     Dates: start: 20200213
  21. NAPROXEN                           /00256202/ [Concomitant]
     Active Substance: NAPROXEN SODIUM
     Dosage: UNK
     Dates: start: 20180903
  22. STILNOCT [Concomitant]
     Active Substance: ZOLPIDEM TARTRATE
     Dosage: UNK
     Dates: start: 20180421
  23. MODIODAL [Concomitant]
     Active Substance: MODAFINIL
     Dosage: UNK
     Dates: start: 20160205
  24. AVAMYS [Concomitant]
     Active Substance: FLUTICASONE FUROATE
     Dosage: UNK
     Dates: start: 20171201
  25. SIDURO [Concomitant]
     Dosage: UNK
  26. ATARAX [Concomitant]
     Active Substance: HYDROXYZINE HYDROCHLORIDE
     Dosage: UNK
     Dates: start: 20150611
  27. HYDROKORTISON ORION [Concomitant]
     Dosage: UNK
     Dates: start: 20200211
  28. IMIGRAN NOVUM [Concomitant]
     Active Substance: SUMATRIPTAN SUCCINATE
     Dosage: UNK
     Dates: start: 20200128

REACTIONS (8)
  - Tension headache [Not Recovered/Not Resolved]
  - Papilloedema [Not Recovered/Not Resolved]
  - Dizziness [Not Recovered/Not Resolved]
  - Meningitis aseptic [Not Recovered/Not Resolved]
  - Intracranial pressure increased [Not Recovered/Not Resolved]
  - Headache [Not Recovered/Not Resolved]
  - Neck pain [Not Recovered/Not Resolved]
  - Nausea [Not Recovered/Not Resolved]

NARRATIVE: CASE EVENT DATE: 20200120
